FAERS Safety Report 6937589-4 (Version None)
Quarter: 2010Q3

REPORT INFORMATION
  Report Type: 
  Country: None (occurrence: None)
  Receive Date: 20100823
  Receipt Date: 20100810
  Transmission Date: 20110219
  Serious: Yes (Hospitalization)
  Sender: FDA-Public Use
  Company Number: US-ELI_LILLY_AND_COMPANY-US201006001748

PATIENT
  Age: 50 Year
  Sex: Female

DRUGS (8)
  1. FORTEO [Suspect]
     Indication: OSTEOPOROSIS
     Dosage: 20 UG, DAILY (1/D)
  2. PREDNISONE [Concomitant]
  3. METHOTREXATE [Concomitant]
  4. TRAMADOL [Concomitant]
  5. FOLIC ACID [Concomitant]
  6. PLAQUENIL [Concomitant]
  7. PREMPRO [Concomitant]
  8. CALCIUM [Concomitant]

REACTIONS (3)
  - CELLULITIS STAPHYLOCOCCAL [None]
  - MALAISE [None]
  - URINARY TRACT INFECTION [None]
